FAERS Safety Report 16768319 (Version 1)
Quarter: 2019Q3

REPORT INFORMATION
  Report Type: Spontaneous
  Country: FR (occurrence: FR)
  Receive Date: 20190903
  Receipt Date: 20190903
  Transmission Date: 20191005
  Serious: Yes (Hospitalization)
  Sender: FDA-Public Use
  Company Number: FR-MYLANLABS-2019M1081861

PATIENT
  Age: 68 Year
  Sex: Male
  Weight: 55 kg

DRUGS (6)
  1. METHOTREXATE MYLAN [Suspect]
     Active Substance: METHOTREXATE SODIUM
     Indication: ANGIOCENTRIC LYMPHOMA
     Dosage: 15 MILLIGRAM, TOTAL
     Route: 037
     Dates: start: 20190315, end: 20190315
  2. GEMCITABINE SANDOZ [Suspect]
     Active Substance: GEMCITABINE\GEMCITABINE HYDROCHLORIDE
     Indication: ANGIOCENTRIC LYMPHOMA
     Dosage: 1680 MILLIGRAM, CYCLE
     Route: 041
     Dates: start: 20190215, end: 20190314
  3. CYTARABINE ACCORD [Suspect]
     Active Substance: CYTARABINE
     Indication: ANGIOCENTRIC LYMPHOMA
     Dosage: 40 MILLIGRAM, TOTAL
     Route: 037
     Dates: start: 20190315, end: 20190315
  4. HYDROCORTISONE UPJOHN [Suspect]
     Active Substance: HYDROCORTISONE
     Indication: ANGIOCENTRIC LYMPHOMA
     Dosage: 20 MILLIGRAM, CYCLE
     Route: 037
     Dates: start: 20190315, end: 20190315
  5. ADCETRIS [Suspect]
     Active Substance: BRENTUXIMAB VEDOTIN
     Indication: ANGIOCENTRIC LYMPHOMA
     Dosage: 100 MILLIGRAM, TOTAL
     Route: 041
     Dates: start: 20190316, end: 20190316
  6. OXALIPLATINE ACCORD [Suspect]
     Active Substance: OXALIPLATIN
     Indication: ANGIOCENTRIC LYMPHOMA
     Dosage: 220 MILLIGRAM, CYCLE
     Route: 041
     Dates: start: 20190215, end: 20190314

REACTIONS (4)
  - Paresis [Recovered/Resolved]
  - Diplegia [Recovered/Resolved]
  - Facial paralysis [Recovered/Resolved]
  - Dysarthria [Recovered/Resolved]

NARRATIVE: CASE EVENT DATE: 20190317
